FAERS Safety Report 9850228 (Version 1)
Quarter: 2014Q1

REPORT INFORMATION
  Report Type: Spontaneous
  Country: US (occurrence: None)
  Receive Date: 20140124
  Receipt Date: 20140124
  Transmission Date: 20141002
  Serious: Yes (Other)
  Sender: FDA-Public Use
  Company Number: None

PATIENT
  Age: 79 Year
  Sex: Male
  Weight: 99.79 kg

DRUGS (7)
  1. FLEBOGAMMA [Suspect]
     Indication: IMMUNODEFICIENCY
     Route: 042
     Dates: start: 20131227, end: 20131227
  2. LORATIDINE [Concomitant]
  3. SYMBICORT INHALTER [Concomitant]
  4. SPIRIVA INHALER [Concomitant]
  5. ALBUTEROL INHALER [Concomitant]
  6. WARAFIN [Concomitant]
  7. OMEPRAZOLE [Concomitant]

REACTIONS (2)
  - Chills [None]
  - Feeling cold [None]
